FAERS Safety Report 12757063 (Version 2)
Quarter: 2017Q3

REPORT INFORMATION
  Report Type: Report from Study
  Country: TW (occurrence: TW)
  Receive Date: 20160918
  Receipt Date: 20170912
  Transmission Date: 20171127
  Serious: No
  Sender: FDA-Public Use
  Company Number: PHHY2016TW128224

PATIENT
  Age: 66 Year
  Sex: Male

DRUGS (4)
  1. MEBEVERINE [Concomitant]
     Active Substance: MEBEVERINE
     Indication: DUODENAL ULCER
     Dosage: 100 MG, UNK
     Route: 048
     Dates: start: 20150916, end: 20151223
  2. TAMSULOSIN HYDROCHLORIDE. [Concomitant]
     Active Substance: TAMSULOSIN HYDROCHLORIDE
     Indication: BENIGN PROSTATIC HYPERPLASIA
     Dosage: 0.2 MG, UNK }3MONTHSBEFOREVISIT1
     Route: 048
     Dates: end: 20161011
  3. TASIGNA [Suspect]
     Active Substance: NILOTINIB
     Indication: CHRONIC MYELOID LEUKAEMIA
     Dosage: 600 OT, UNK
     Route: 048
     Dates: start: 20140910
  4. LANSOPRAZOLE. [Concomitant]
     Active Substance: LANSOPRAZOLE
     Indication: DUODENAL ULCER
     Dosage: 30 MG, UNK
     Route: 048
     Dates: start: 20150916, end: 20151223

REACTIONS (1)
  - Abdominal distension [Recovered/Resolved]

NARRATIVE: CASE EVENT DATE: 20150916
